FAERS Safety Report 16580387 (Version 1)
Quarter: 2019Q3

REPORT INFORMATION
  Report Type: Report from Study
  Country: PL (occurrence: PL)
  Receive Date: 20190716
  Receipt Date: 20190716
  Transmission Date: 20191004
  Serious: Yes (Other)
  Sender: FDA-Public Use
  Company Number: PHHY2019PL157917

PATIENT
  Age: 54 Year

DRUGS (1)
  1. NILOTINIB [Suspect]
     Active Substance: NILOTINIB
     Indication: CHRONIC MYELOID LEUKAEMIA
     Dosage: 400 MG (2 DF), UNK
     Route: 065
     Dates: start: 201410

REACTIONS (4)
  - Liver function test increased [Unknown]
  - Hypertension [Unknown]
  - Colitis ulcerative [Unknown]
  - Hyperlipidaemia [Unknown]
